FAERS Safety Report 19098600 (Version 1)
Quarter: 2021Q2

REPORT INFORMATION
  Report Type: Spontaneous
  Country: US (occurrence: US)
  Receive Date: 20210406
  Receipt Date: 20210406
  Transmission Date: 20210717
  Serious: No
  Sender: FDA-Public Use
  Company Number: US-TAKEDA-2021TUS021347

PATIENT
  Sex: Male
  Weight: 88 kg

DRUGS (2)
  1. DEXILANT [Suspect]
     Active Substance: DEXLANSOPRAZOLE
     Indication: DYSPEPSIA
  2. DEXILANT [Suspect]
     Active Substance: DEXLANSOPRAZOLE
     Indication: DYSPEPSIA
     Dosage: 60 MILLIGRAM
     Route: 065

REACTIONS (3)
  - Product dose omission issue [Unknown]
  - No adverse event [Unknown]
  - Product use in unapproved indication [Unknown]
